FAERS Safety Report 5948340-9 (Version None)
Quarter: 2008Q4

REPORT INFORMATION
  Report Type: 
  Country: None (occurrence: None)
  Receive Date: 20081111
  Receipt Date: 20081106
  Transmission Date: 20090506
  Serious: Yes (Death)
  Sender: FDA-Public Use
  Company Number: CH-ASTRAZENECA-2008PK02424

PATIENT
  Age: 39 Year
  Sex: Male
  Weight: 80 kg

DRUGS (3)
  1. SEROQUEL [Suspect]
     Indication: ANXIETY
     Route: 048
     Dates: start: 20080927, end: 20081002
  2. SEROQUEL [Suspect]
     Indication: SLEEP DISORDER
     Route: 048
     Dates: start: 20080927, end: 20081002
  3. CIPRALEX [Suspect]
     Indication: DEPRESSION
     Route: 048
     Dates: start: 20080927, end: 20081002

REACTIONS (1)
  - COMPLETED SUICIDE [None]
